FAERS Safety Report 6279089-3 (Version None)
Quarter: 2009Q3

REPORT INFORMATION
  Report Type: 
  Country: None (occurrence: None)
  Receive Date: 20090723
  Receipt Date: 20080603
  Transmission Date: 20100115
  Serious: No
  Sender: FDA-Public Use
  Company Number: US-AMGEN-KDL285007

PATIENT
  Sex: Male
  Weight: 68.1 kg

DRUGS (12)
  1. PROCRIT [Suspect]
     Indication: MYELODYSPLASTIC SYNDROME
     Dates: start: 20060101
  2. THERAGRAN-M [Concomitant]
  3. SAW PALMETTO [Concomitant]
  4. ISOSORBIDE MONONITRATE [Concomitant]
  5. SIMVASTATIN [Concomitant]
  6. VITAMIN B-12 [Concomitant]
  7. SODIUM BICARBONATE [Concomitant]
  8. COMBIVENT [Concomitant]
  9. ADVAIR HFA [Concomitant]
  10. LOMOTIL [Concomitant]
  11. SULINDAC [Concomitant]
     Route: 048
  12. FISH OIL [Concomitant]

REACTIONS (5)
  - BLOOD CREATININE INCREASED [None]
  - CALCULUS URETERIC [None]
  - HAEMOGLOBIN DECREASED [None]
  - PRURITUS [None]
  - RASH PRURITIC [None]
